FAERS Safety Report 10235027 (Version 1)
Quarter: 2014Q2

REPORT INFORMATION
  Report Type: Report from Study
  Country: BR (occurrence: BR)
  Receive Date: 20140613
  Receipt Date: 20140613
  Transmission Date: 20141212
  Serious: Yes (Other)
  Sender: FDA-Public Use
  Company Number: PHHY2014BR072734

PATIENT
  Sex: Female
  Weight: 56 kg

DRUGS (1)
  1. FORASEQ [Suspect]
     Indication: ASTHMA
     Dosage: UNK UKN, (1 TO 3 TIMES DAILY)
     Route: 055

REACTIONS (5)
  - Drug dependence [Unknown]
  - Asthma [Unknown]
  - Fatigue [Unknown]
  - Exercise tolerance decreased [Unknown]
  - Overdose [Unknown]
